FAERS Safety Report 9600696 (Version 1)
Quarter: 2013Q4

REPORT INFORMATION
  Report Type: Spontaneous
  Country: US (occurrence: US)
  Receive Date: 20131004
  Receipt Date: 20131004
  Transmission Date: 20140711
  Serious: No
  Sender: FDA-Public Use
  Company Number: US-AMGEN-USASP2013036855

PATIENT
  Age: 56 Year
  Sex: Female
  Weight: 71.66 kg

DRUGS (19)
  1. ENBREL [Suspect]
     Indication: PRODUCT USED FOR UNKNOWN INDICATION
     Dosage: 50 MG, QWK
     Route: 058
  2. VITAMIN D3 [Concomitant]
     Dosage: 5000 UNIT, UNK
  3. CALTRATE                           /00944201/ [Concomitant]
     Dosage: 600 UNK, UNK
  4. VITAMIN C ACEROLA [Concomitant]
     Dosage: 500 MG, UNK
  5. MULTIVITAMINS, PLAIN [Concomitant]
     Dosage: UNK
  6. ESTER C                            /00008001/ [Concomitant]
     Dosage: UNK
  7. PRAVASTATIN [Concomitant]
     Dosage: 10 MG, UNK
  8. PANTOPRAZOLE [Concomitant]
     Dosage: 20 MG, UNK
  9. OXYCODONE [Concomitant]
     Dosage: 5 MG, UNK
  10. ACYCLOVIR                          /00587301/ [Concomitant]
     Dosage: 200 MG, UNK
  11. ADVAIR [Concomitant]
     Dosage: UNK 100/50
  12. GRALISE [Concomitant]
     Dosage: 300 MG, UNK
  13. NIASPAN [Concomitant]
     Dosage: 500 MG, UNK
  14. SEROQUEL [Concomitant]
     Dosage: 25 MG, UNK
  15. FOLIC ACID [Concomitant]
     Dosage: 1 MG, UNK
  16. LAMOTRIGINE [Concomitant]
     Dosage: 25 MG, UNK
  17. METHOTREXATE [Concomitant]
     Dosage: UNK
  18. ALPRAZOLAM [Concomitant]
     Dosage: 0.5 MG, UNK
  19. OXYCONTIN [Concomitant]
     Dosage: 10 MG, UNK

REACTIONS (1)
  - Drug ineffective [Unknown]
